FAERS Safety Report 22220271 (Version 1)
Quarter: 2023Q2

REPORT INFORMATION
  Report Type: Spontaneous
  Country: US (occurrence: US)
  Receive Date: 20230417
  Receipt Date: 20230417
  Transmission Date: 20230722
  Serious: Yes (Other)
  Sender: FDA-Public Use
  Company Number: US-ROWPAR-2023-US-008036

PATIENT
  Age: 63 Year
  Sex: Female
  Weight: 72.58 kg

DRUGS (3)
  1. CLOSYS [Suspect]
     Active Substance: SODIUM FLUORIDE
     Indication: Dental disorder prophylaxis
     Dosage: BRUSH TEETH TWICE DAILY, MORNING AND EVENING FOR TWO MINUTES
     Route: 061
     Dates: start: 20230215, end: 20230323
  2. AMOXICILLIN [Suspect]
     Active Substance: AMOXICILLIN
     Route: 048
     Dates: start: 20230309, end: 20230315
  3. ATORVASTATIN [Concomitant]
     Active Substance: ATORVASTATIN

REACTIONS (6)
  - Tongue erythema [Recovered/Resolved]
  - Tongue eruption [Recovered/Resolved]
  - Oral pain [Recovered/Resolved]
  - Abscess [Recovered/Resolved]
  - Facial pain [Recovered/Resolved]
  - Trismus [Recovered/Resolved]

NARRATIVE: CASE EVENT DATE: 20230307
